FAERS Safety Report 4951900-5 (Version None)
Quarter: 2006Q1

REPORT INFORMATION
  Report Type: 
  Country: None (occurrence: None)
  Receive Date: 20060323
  Receipt Date: 20050414
  Transmission Date: 20060701
  Serious: Yes (Hospitalization, Other)
  Sender: FDA-Public Use
  Company Number: US-MERCK-0504USA02959

PATIENT
  Age: 66 Year
  Sex: Female
  Weight: 82 kg

DRUGS (14)
  1. POTASSIUM CHLORIDE [Concomitant]
     Route: 065
  2. LIPITOR [Concomitant]
     Route: 065
  3. PROTONIX [Concomitant]
     Route: 065
  4. HYDROCHLOROTHIAZIDE [Concomitant]
     Route: 065
  5. ALLEGRA [Concomitant]
     Route: 065
  6. IRON (UNSPECIFIED) [Concomitant]
     Route: 065
  7. ISOSORBIDE MONONITRATE [Concomitant]
     Route: 065
  8. PROMETHAZINE [Concomitant]
     Route: 065
  9. ZOCOR [Concomitant]
     Route: 065
  10. VIOXX [Suspect]
     Indication: ARTHRITIS
     Route: 048
     Dates: start: 20030901, end: 20040501
  11. NORVASC [Concomitant]
     Route: 065
     Dates: start: 19981119
  12. TOPROL-XL [Concomitant]
     Route: 065
     Dates: start: 20030927
  13. ZITHROMAX [Concomitant]
     Route: 065
  14. LEVAQUIN [Concomitant]
     Route: 065

REACTIONS (5)
  - ADVERSE EVENT [None]
  - CAROTID ARTERY STENOSIS [None]
  - INJURY [None]
  - MYOCARDIAL INFARCTION [None]
  - OEDEMA PERIPHERAL [None]
